FAERS Safety Report 9863363 (Version 3)
Quarter: 2014Q4

REPORT INFORMATION
  Report Type: Spontaneous
  Country: US (occurrence: US)
  Receive Date: 20140203
  Receipt Date: 20141026
  Transmission Date: 20150529
  Serious: Yes (Hospitalization, Other)
  Sender: FDA-Public Use
  Company Number: US-009507513-1402USA000053

PATIENT
  Sex: Female
  Weight: 59 kg

DRUGS (1)
  1. NUVARING [Suspect]
     Active Substance: ETHINYL ESTRADIOL\ETONOGESTREL
     Indication: PRODUCT USED FOR UNKNOWN INDICATION
     Dosage: UNK
     Route: 067
     Dates: start: 20110812

REACTIONS (9)
  - Thrombectomy [Unknown]
  - Small intestinal resection [Unknown]
  - Thoracic operation [Unknown]
  - Renal infarct [Unknown]
  - Arterial thrombosis [Unknown]
  - Intestinal ischaemia [Unknown]
  - Small intestinal obstruction [Unknown]
  - Intestinal anastomosis [Unknown]
  - Aortic surgery [Unknown]

NARRATIVE: CASE EVENT DATE: 20120827
